FAERS Safety Report 9916757 (Version 4)
Quarter: 2014Q3

REPORT INFORMATION
  Report Type: Report from Study
  Country: US (occurrence: US)
  Receive Date: 20140221
  Receipt Date: 20140902
  Transmission Date: 20150326
  Serious: Yes (Other)
  Sender: FDA-Public Use
  Company Number: US-SA-2014SA016950

PATIENT
  Sex: Female

DRUGS (1)
  1. AUBAGIO [Suspect]
     Active Substance: TERIFLUNOMIDE
     Indication: MULTIPLE SCLEROSIS
     Route: 048
     Dates: start: 20131113

REACTIONS (8)
  - Gastrointestinal disorder [Unknown]
  - Diarrhoea [Unknown]
  - Knee operation [Unknown]
  - Alopecia [Unknown]
  - Hypertension [Unknown]
  - Paraesthesia [Unknown]
  - Burning sensation [Unknown]
  - Influenza [Unknown]
